FAERS Safety Report 17652546 (Version 2)
Quarter: 2020Q2

REPORT INFORMATION
  Report Type: Spontaneous
  Country: US (occurrence: US)
  Receive Date: 20200409
  Receipt Date: 20200422
  Transmission Date: 20200713
  Serious: No
  Sender: FDA-Public Use
  Company Number: US-VERTEX PHARMACEUTICALS-2019-012453

PATIENT
  Age: 56 Year
  Sex: Male

DRUGS (1)
  1. TRIKAFTA [Suspect]
     Active Substance: ELEXACAFTOR\IVACAFTOR\TEZACAFTOR
     Indication: CYSTIC FIBROSIS
     Dosage: ELEXACAFTOR 100MG/TEZACAFTOR 50MG/IVACAFTOR 75MG; IVACAFTOR 150MG, BID
     Route: 048
     Dates: start: 20191107

REACTIONS (4)
  - Cough [Not Recovered/Not Resolved]
  - Weight increased [Unknown]
  - Fatigue [Recovering/Resolving]
  - Product dose omission [Recovered/Resolved]

NARRATIVE: CASE EVENT DATE: 20191110
